FAERS Safety Report 12973819 (Version 4)
Quarter: 2017Q1

REPORT INFORMATION
  Report Type: Spontaneous
  Country: US (occurrence: US)
  Receive Date: 20161124
  Receipt Date: 20170306
  Transmission Date: 20170428
  Serious: No
  Sender: FDA-Public Use
  Company Number: US-009507513-1611USA011284

PATIENT
  Age: 18 Year
  Sex: Female
  Weight: 114.7 kg

DRUGS (4)
  1. NEXPLANON [Suspect]
     Active Substance: ETONOGESTREL
     Indication: CONTRACEPTION
     Dosage: 1 IMPLANT (68 MG), UNK
     Route: 059
     Dates: start: 20131108
  2. VIMPAT [Concomitant]
     Active Substance: LACOSAMIDE
     Dosage: TAKE 1 TABLET (100 MG) BY ORAL ROUTE ONCE A DAY (IN THE EVENING)
     Route: 048
  3. PONSTEL [Concomitant]
     Active Substance: MEFENAMIC ACID
     Dosage: 2 CAPSULES (500 MG) ONCE
     Route: 048
     Dates: start: 20151021
  4. PONSTEL [Concomitant]
     Active Substance: MEFENAMIC ACID
     Dosage: 1 CAPSULE (250 MG) EVERY 6 HOURS AS NEEDED USUALLY NOT TO EXCEED 1 WEEK
     Route: 048
     Dates: start: 201510

REACTIONS (5)
  - Weight increased [Not Recovered/Not Resolved]
  - Complication associated with device [Recovered/Resolved]
  - Incorrect drug administration duration [Unknown]
  - Device deployment issue [Not Recovered/Not Resolved]
  - Device difficult to use [Not Recovered/Not Resolved]

NARRATIVE: CASE EVENT DATE: 20131108
